FAERS Safety Report 8419194-6 (Version None)
Quarter: 2012Q2

REPORT INFORMATION
  Report Type: 
  Country: None (occurrence: None)
  Receive Date: 20120607
  Receipt Date: 20120528
  Transmission Date: 20120825
  Serious: Yes (Hospitalization)
  Sender: FDA-Public Use
  Company Number: CA-JNJFOC-20120601377

PATIENT
  Sex: Male

DRUGS (5)
  1. XARELTO [Suspect]
     Route: 048
     Dates: start: 20120423
  2. OXYCODONE HCL [Concomitant]
     Indication: PROCEDURAL PAIN
  3. XARELTO [Suspect]
     Route: 048
     Dates: start: 20120423
  4. XARELTO [Suspect]
     Indication: HIP ARTHROPLASTY
     Route: 048
  5. XARELTO [Suspect]
     Indication: THROMBOSIS PROPHYLAXIS
     Route: 048

REACTIONS (2)
  - NAUSEA [None]
  - OESOPHAGEAL PAIN [None]
